FAERS Safety Report 25720837 (Version 2)
Quarter: 2025Q3

REPORT INFORMATION
  Report Type: Report from Study
  Country: CO (occurrence: CO)
  Receive Date: 20250825
  Receipt Date: 20250827
  Transmission Date: 20251020
  Serious: Yes (Hospitalization)
  Sender: ASTELLAS
  Company Number: CO-ASTELLAS-2025-AER-046036

PATIENT
  Age: 52 Year
  Sex: Female
  Weight: 64 kg

DRUGS (4)
  1. TACROLIMUS [Suspect]
     Active Substance: TACROLIMUS
     Indication: Heart transplant
     Dosage: 1 MG (TWO CAPSULES) AND TACROLIMUS 5 MG (TWO CAPSULES), DAILY DOSE OF 12 MG EVERY 24 HOURS
     Route: 048
     Dates: start: 20250123, end: 2025
  2. TACROLIMUS [Suspect]
     Active Substance: TACROLIMUS
     Dosage: 1 MG (1 CAPSULE) AND TACROLIMUS 5 MG (1 CAPSULE), DAILY DOSE OF 6 MG EVERY 24 HOURS
     Route: 048
     Dates: start: 2025
  3. TACROLIMUS [Suspect]
     Active Substance: TACROLIMUS
     Indication: Heart transplant
     Dosage: 1 MG (TWO CAPSULES) AND TACROLIMUS 5 MG (TWO CAPSULES), DAILY DOSE OF 12 MG EVERY 24 HOURS
     Route: 048
     Dates: start: 20250123, end: 2025
  4. TACROLIMUS [Suspect]
     Active Substance: TACROLIMUS
     Dosage: 1 MG (1 CAPSULE) AND TACROLIMUS 5 MG (1 CAPSULE), DAILY DOSE OF 6 MG EVERY 24 HOURS
     Route: 048
     Dates: start: 2025

REACTIONS (2)
  - Toxicity to various agents [Unknown]
  - Immunosuppressant drug level increased [Unknown]

NARRATIVE: CASE EVENT DATE: 20250101
